FAERS Safety Report 8407094-7 (Version None)
Quarter: 2012Q2

REPORT INFORMATION
  Report Type: 
  Country: None (occurrence: None)
  Receive Date: 20120323
  Receipt Date: 20110711
  Transmission Date: 20120825
  Serious: Yes (Other)
  Sender: FDA-Public Use
  Company Number: 163-21880-11052375

PATIENT
  Age: 57 Year
  Sex: Female
  Weight: 65.7716 kg

DRUGS (12)
  1. TUMS (CALCIUM CARBONATE)(UNKNOWN) [Concomitant]
  2. OXYCODONE (OXYCODONE)(UNKNOWN) [Concomitant]
  3. COUMADIN [Concomitant]
  4. GABAPENTIN [Concomitant]
  5. LASIX [Concomitant]
  6. LIDODERM (LIDOCAINE)(UNKNOWN) [Concomitant]
  7. CALCIUM (CALCIUM)(UNKNOWN) [Concomitant]
  8. VITAMIN D (ERGOCALCIFEROL)(UNKNOWN) [Concomitant]
  9. REVLIMID [Suspect]
     Indication: MULTIPLE MYELOMA
     Dosage: 10 MG, DAILY X 21 DAYS, PO
     Route: 048
     Dates: start: 20101201
  10. POTASSIUM (POTASSIUM)(UNKNOWN) [Concomitant]
  11. CENTRUM (CENTRUM)(UNKNOWN) [Concomitant]
  12. PROBIOTIC (LACTOBACILLUS REUTERI)(UNKNOWN) [Concomitant]

REACTIONS (1)
  - THROMBOSIS [None]
